FAERS Safety Report 6092626-7 (Version None)
Quarter: 2009Q1

REPORT INFORMATION
  Report Type: 
  Country: None (occurrence: None)
  Receive Date: 20090225
  Receipt Date: 20090219
  Transmission Date: 20090719
  Serious: Yes (Hospitalization)
  Sender: FDA-Public Use
  Company Number: US-BAYER-200813734BCC

PATIENT
  Age: 72 Year
  Sex: Female
  Weight: 75 kg

DRUGS (4)
  1. ASPIRIN [Suspect]
     Indication: ANALGESIA
     Dosage: TOTAL DAILY DOSE: 325 MG  UNIT DOSE: 325 MG
     Route: 048
     Dates: start: 20060101, end: 20080903
  2. ASPIRIN [Suspect]
     Dosage: UNIT DOSE: 325 MG
     Route: 048
     Dates: end: 20080903
  3. PLAVIX [Suspect]
     Indication: DRUG USE FOR UNKNOWN INDICATION
  4. CELEBREX [Suspect]

REACTIONS (6)
  - BLOOD PRESSURE INCREASED [None]
  - CARDIAC OPERATION [None]
  - CONTUSION [None]
  - EPISTAXIS [None]
  - HEART RATE INCREASED [None]
  - PALPITATIONS [None]
